FAERS Safety Report 12960097 (Version 1)
Quarter: 2020Q3

REPORT INFORMATION
  Report Type: Report from Study
  Country: AT (occurrence: AT)
  Receive Date: 20161121
  Receipt Date: 20161121
  Transmission Date: 20201104
  Serious: Yes (Other)
  Sender: FDA-Public Use
  Company Number: AT-ROCHE-1856492

PATIENT

DRUGS (1)
  1. IBANDRONIC ACID. [Suspect]
     Active Substance: IBANDRONIC ACID
     Indication: HYPERCALCAEMIA
     Dosage: SINGLE?DAY INFUSION ON DAY 0; DISSOLVED IN 500 ML ISOTONIC SALINE SOLUTION AND INFUSED OVER 2 HOURS.
     Route: 042

REACTIONS (1)
  - Thrombocytopenia [Unknown]
